FAERS Safety Report 7631738-0 (Version None)
Quarter: 2011Q3

REPORT INFORMATION
  Report Type: 
  Country: None (occurrence: None)
  Receive Date: 20110725
  Receipt Date: 20110225
  Transmission Date: 20111222
  Serious: No
  Sender: FDA-Public Use
  Company Number: US-BRISTOL-MYERS SQUIBB COMPANY-15570344

PATIENT
  Age: 67 Year
  Sex: Male
  Weight: 93 kg

DRUGS (4)
  1. LEXAPRO [Concomitant]
  2. IBUPROFEN (ADVIL) [Concomitant]
  3. WARFARIN SODIUM [Suspect]
     Indication: THROMBOSIS
  4. LOVASTATIN [Concomitant]

REACTIONS (1)
  - URTICARIA [None]
